FAERS Safety Report 4652111-3 (Version None)
Quarter: 2005Q2

REPORT INFORMATION
  Report Type: 
  Country: None (occurrence: None)
  Receive Date: 20050408
  Receipt Date: 20041228
  Transmission Date: 20051028
  Serious: No
  Sender: FDA-Public Use
  Company Number: 235601K04USA

PATIENT
  Age: 46 Year
  Sex: Male

DRUGS (3)
  1. REBIF [Suspect]
     Indication: MULTIPLE SCLEROSIS
     Dosage: 22 MCG, 3 IN 1 WEEKS, SUBCUTANEOUS
     Route: 058
     Dates: start: 20030429, end: 20040101
  2. REBIF [Suspect]
     Indication: MULTIPLE SCLEROSIS
     Dosage: 22 MCG, 3 IN 1 WEEKS, SUBCUTANEOUS
     Route: 058
     Dates: start: 20040101
  3. AMELOR (NORTRIPTYLINE HYDROCHLORIDE) [Concomitant]

REACTIONS (7)
  - CONFUSIONAL STATE [None]
  - DYSPNOEA [None]
  - HEPATIC ENZYME INCREASED [None]
  - INJECTION SITE ERYTHEMA [None]
  - INJECTION SITE PAIN [None]
  - INJECTION SITE REACTION [None]
  - MIGRAINE [None]
